FAERS Safety Report 16624602 (Version 2)
Quarter: 2019Q3

REPORT INFORMATION
  Report Type: Spontaneous
  Country: CN (occurrence: CN)
  Receive Date: 20190724
  Receipt Date: 20190809
  Transmission Date: 20191004
  Serious: Yes (Other)
  Sender: FDA-Public Use
  Company Number: CN-BAYER-2019-138726

PATIENT
  Age: 33 Year
  Sex: Female
  Weight: 47 kg

DRUGS (1)
  1. IOPROMIDE. [Suspect]
     Active Substance: IOPROMIDE
     Dosage: 70 ML, ONCE; DIAGNOSTIC
     Route: 041
     Dates: start: 20190709, end: 20190709

REACTIONS (4)
  - Pruritus [Recovering/Resolving]
  - Upper airway obstruction [Recovering/Resolving]
  - Muscle tightness [Recovering/Resolving]
  - Urticaria [Recovering/Resolving]

NARRATIVE: CASE EVENT DATE: 20190709
